FAERS Safety Report 9607410 (Version 2)
Quarter: 2013Q4

REPORT INFORMATION
  Report Type: Spontaneous
  Country: BR (occurrence: BR)
  Receive Date: 20131009
  Receipt Date: 20131009
  Transmission Date: 20140711
  Serious: Yes (Other)
  Sender: FDA-Public Use
  Company Number: BR-ROCHE-1243529

PATIENT
  Age: 43 Year
  Sex: Male

DRUGS (9)
  1. PEGASYS [Suspect]
     Indication: HEPATITIS C
     Route: 065
     Dates: start: 20120407, end: 20121217
  2. RIBAVIRIN [Suspect]
     Indication: HEPATITIS C
     Route: 065
  3. SPIRONOLACTONE [Concomitant]
     Route: 065
     Dates: start: 20120914, end: 20121217
  4. FILGRASTIM [Concomitant]
     Route: 065
  5. DAFLON (BRAZIL) [Concomitant]
     Route: 065
     Dates: start: 20120413, end: 20121217
  6. AMOXICILLIN/CLAVULANATE [Concomitant]
     Route: 065
     Dates: start: 20120413, end: 20120420
  7. ACYCLOVIR [Concomitant]
     Route: 065
     Dates: start: 20120914, end: 20120920
  8. MUPIROCIN [Concomitant]
     Route: 065
     Dates: start: 20121105, end: 20130518
  9. FUROSEMIDE [Concomitant]
     Route: 065
     Dates: start: 20120914, end: 20121217

REACTIONS (16)
  - Oedema peripheral [Recovered/Resolved]
  - Dermatitis bullous [Recovered/Resolved with Sequelae]
  - Pneumonia [Recovered/Resolved]
  - Empyema [Recovered/Resolved]
  - Varices oesophageal [Unknown]
  - Haemolysis [Recovered/Resolved]
  - Splenomegaly [Not Recovered/Not Resolved]
  - Anaemia [Recovered/Resolved]
  - Platelet count decreased [Recovered/Resolved]
  - Leukopenia [Recovered/Resolved]
  - Herpes virus infection [Unknown]
  - Abscess [Unknown]
  - Lung disorder [Unknown]
  - Portal hypertension [Unknown]
  - Pyrexia [Recovered/Resolved]
  - Hyperaemia [Recovered/Resolved]
